FAERS Safety Report 4614359-3 (Version None)
Quarter: 2005Q1

REPORT INFORMATION
  Report Type: 
  Country: None (occurrence: None)
  Receive Date: 20050308
  Receipt Date: 20041108
  Transmission Date: 20050727
  Serious: Yes (Other)
  Sender: FDA-Public Use
  Company Number: 2004UW23003

PATIENT
  Age: 72 Year
  Sex: Female
  Weight: 53.523 kg

DRUGS (2)
  1. CRESTOR [Suspect]
     Indication: HYPERCHOLESTEROLAEMIA
     Dates: start: 20041001
  2. AMIODARONE [Concomitant]

REACTIONS (1)
  - POLLAKIURIA [None]
